FAERS Safety Report 26074934 (Version 2)
Quarter: 2025Q4

REPORT INFORMATION
  Report Type: Report from Study
  Country: US (occurrence: US)
  Receive Date: 20251121
  Receipt Date: 20251128
  Transmission Date: 20260119
  Serious: Yes (Other)
  Sender: TEVA
  Company Number: US-TEVA-VS-3394734

PATIENT

DRUGS (2)
  1. LINEZOLID [Suspect]
     Active Substance: LINEZOLID
     Indication: Endocarditis
     Route: 050
  2. LEVOFLOXACIN [Suspect]
     Active Substance: LEVOFLOXACIN
     Indication: Endocarditis
     Route: 050

REACTIONS (3)
  - Neuropathy peripheral [Unknown]
  - Arthralgia [Unknown]
  - Abdominal discomfort [Unknown]
